FAERS Safety Report 4873276-4 (Version None)
Quarter: 2005Q4

REPORT INFORMATION
  Report Type: 
  Country: None (occurrence: None)
  Receive Date: 20051201
  Receipt Date: 20050807
  Transmission Date: 20060501
  Serious: No
  Sender: FDA-Public Use
  Company Number: 2005PV000874

PATIENT
  Sex: Female

DRUGS (6)
  1. BYETTA [Suspect]
     Indication: DIABETES MELLITUS
     Dosage: SEE IMAGE
     Route: 058
     Dates: start: 20050630, end: 20050802
  2. BYETTA [Suspect]
     Indication: DIABETES MELLITUS
     Dosage: SEE IMAGE
     Route: 058
     Dates: start: 20050803
  3. NOVOLIN N [Concomitant]
  4. NOVOLIN N [Concomitant]
  5. NOVOLIN N [Concomitant]
  6. NOVOLIN N [Concomitant]

REACTIONS (7)
  - CHILLS [None]
  - CONDITION AGGRAVATED [None]
  - HYPERHIDROSIS [None]
  - LETHARGY [None]
  - MUSCLE SPASMS [None]
  - NAUSEA [None]
  - WEIGHT DECREASED [None]
